FAERS Safety Report 8672747 (Version 2)
Quarter: 2013Q1

REPORT INFORMATION
  Report Type: Spontaneous
  Country: JP (occurrence: JP)
  Receive Date: 20120702
  Receipt Date: 20130118
  Transmission Date: 20140127
  Serious: Yes (Other)
  Sender: FDA-Public Use
  Company Number: JP-JNJFOC-20120611963

PATIENT
  Age: 6 Decade
  Sex: Female

DRUGS (3)
  1. DOXORUBICIN HYDROCHHLORIDE [Suspect]
     Indication: PHYLLODES TUMOUR
     Dosage: DOXORUBICIN HYDROCHLORIDE WAS INCLUDED AFTER CYCLE 2 UNTIL CYCLE 5
     Route: 042
  2. DOXORUBICIN [Suspect]
     Indication: PHYLLODES TUMOUR
     Dosage: DOXORUBICIN HYDROCHLORIDE WAS INCLUDED AFTER CYCLE 2 UNTIL CYCLE 5
     Route: 042
  3. IFOSFAMIDE [Suspect]
     Indication: PHYLLODES TUMOUR
     Dosage: DAY 1 TO 5, TOTAL 10 CYCLES
     Route: 042

REACTIONS (3)
  - Cystitis haemorrhagic [Unknown]
  - Bone marrow failure [Unknown]
  - Nausea [Unknown]
